FAERS Safety Report 4477843-1 (Version None)
Quarter: 2004Q4

REPORT INFORMATION
  Report Type: 
  Country: None (occurrence: None)
  Receive Date: 20041014
  Receipt Date: 20040929
  Transmission Date: 20050328
  Serious: No
  Sender: FDA-Public Use
  Company Number: 2004AP05030

PATIENT
  Age: 55 Year
  Sex: Male

DRUGS (8)
  1. CARBOCAIN [Suspect]
     Indication: EPIDURAL ANAESTHESIA
  2. DIPRIVAN [Suspect]
     Indication: GENERAL ANAESTHESIA
  3. ETIZOLAM [Concomitant]
  4. ATROPINE SULFATE [Concomitant]
  5. FENTANYL [Concomitant]
  6. VECURONIUM BROMIDE [Concomitant]
  7. OXYGEN [Concomitant]
  8. NITROUS OXIDE W/ OXYGEN [Concomitant]

REACTIONS (5)
  - ARRHYTHMIA [None]
  - ELECTROCARDIOGRAM ST SEGMENT ELEVATION [None]
  - PROCEDURAL COMPLICATION [None]
  - VENTRICULAR EXTRASYSTOLES [None]
  - VENTRICULAR TACHYCARDIA [None]
